FAERS Safety Report 12223640 (Version 1)
Quarter: 2016Q1

REPORT INFORMATION
  Report Type: Report from Study
  Country: US (occurrence: US)
  Receive Date: 20160330
  Receipt Date: 20160330
  Transmission Date: 20160526
  Serious: No
  Sender: FDA-Public Use
  Company Number: US-MDT-ADR-2016-00346

PATIENT
  Age: 48 Year
  Sex: Female

DRUGS (12)
  1. DILAUDID [Suspect]
     Active Substance: HYDROMORPHONE HYDROCHLORIDE
     Dosage: 0.9999 MG/DAY
     Route: 037
  2. BUPIVACAINE [Suspect]
     Active Substance: BUPIVACAINE
     Dosage: 17.273 MG/DAY
     Route: 037
     Dates: start: 20150409
  3. COMPOUNDED BACLOFEN [Suspect]
     Active Substance: BACLOFEN
     Indication: PAIN
     Dosage: 82.39 MCG/DAY
     Route: 037
     Dates: start: 20150917
  4. COMPOUNDED BACLOFEN [Suspect]
     Active Substance: BACLOFEN
     Indication: PAIN
     Dosage: 124.99 MCG/DAY
     Route: 037
  5. DILAUDID [Suspect]
     Active Substance: HYDROMORPHONE HYDROCHLORIDE
     Dosage: 0.6591 MG/DAY
     Route: 037
     Dates: start: 20150917
  6. COMPOUNDED BACLOFEN [Suspect]
     Active Substance: BACLOFEN
     Indication: PAIN
     Dosage: 143.94 MCG/DAY
     Route: 037
     Dates: start: 20150409
  7. BUPIVACAINE [Suspect]
     Active Substance: BUPIVACAINE
     Dosage: 9.887 MG/DAY
     Route: 037
     Dates: start: 20150917
  8. DILAUDID [Suspect]
     Active Substance: HYDROMORPHONE HYDROCHLORIDE
     Dosage: 0.6003 MG/DAY
     Route: 037
     Dates: start: 20130927
  9. DILAUDID [Suspect]
     Active Substance: HYDROMORPHONE HYDROCHLORIDE
     Dosage: 1.1515 MG/DAY
     Route: 037
     Dates: start: 20150409
  10. BUPIVACAINE [Suspect]
     Active Substance: BUPIVACAINE
     Dosage: 14.999 MG/DAY
     Route: 037
  11. BUPIVACAINE [Suspect]
     Active Substance: BUPIVACAINE
     Dosage: 9.004 MG/DAY
     Route: 037
     Dates: start: 20130927
  12. COMPOUNDED BACLOFEN [Suspect]
     Active Substance: BACLOFEN
     Indication: PAIN
     Dosage: 75.03 MCG/DAY
     Route: 037
     Dates: start: 20130927

REACTIONS (1)
  - Medical device site pain [Not Recovered/Not Resolved]
